FAERS Safety Report 14040296 (Version 3)
Quarter: 2017Q4

REPORT INFORMATION
  Report Type: Report from Study
  Country: US (occurrence: US)
  Receive Date: 20171004
  Receipt Date: 20171205
  Transmission Date: 20180321
  Serious: Yes (Hospitalization, Disabling)
  Sender: FDA-Public Use
  Company Number: US-ACTELION-A-US2017-160239

PATIENT
  Age: 58 Year
  Sex: Female

DRUGS (51)
  1. PREDNISONE. [Concomitant]
     Active Substance: PREDNISONE
     Dosage: 20 MG, UNK
     Dates: start: 20160707
  2. ZOLPIDEM [Concomitant]
     Active Substance: ZOLPIDEM\ZOLPIDEM TARTRATE
     Dosage: 10 MG, UNK
  3. ALPRAZOLAM. [Concomitant]
     Active Substance: ALPRAZOLAM
     Dosage: .5 MG, UNK
  4. AZITHROMYCIN ANHYDROUS. [Concomitant]
     Active Substance: AZITHROMYCIN ANHYDROUS
     Dosage: 250 MG, UNK
     Dates: start: 20160707
  5. METOCLOPRAM [Concomitant]
     Active Substance: METOCLOPRAMIDE
     Dosage: 10 MG, UNK
     Dates: start: 20160707
  6. NEURONTIN [Concomitant]
     Active Substance: GABAPENTIN
     Dosage: 600 MG, UNK
     Dates: start: 20160707
  7. POTASSIUM CHLORIDE. [Concomitant]
     Active Substance: POTASSIUM CHLORIDE
     Dosage: 10 MEQ, UNK
     Dates: start: 20110321
  8. PREDNISONE. [Concomitant]
     Active Substance: PREDNISONE
     Dosage: 5 MG, UNK
  9. PANTOPRAZOLE [Concomitant]
     Active Substance: PANTOPRAZOLE
     Dosage: 20 MG, UNK
     Dates: start: 20170329
  10. LEVOTHYROXINE. [Concomitant]
     Active Substance: LEVOTHYROXINE
     Dosage: 100 MCG, UNK
  11. AMBIEN [Concomitant]
     Active Substance: ZOLPIDEM TARTRATE
     Dosage: 2 MG, UNK
     Dates: start: 20160707
  12. REVATIO [Concomitant]
     Active Substance: SILDENAFIL CITRATE
     Dosage: 20 MG, UNK
     Dates: start: 20160707
  13. ZANTAC [Concomitant]
     Active Substance: RANITIDINE HYDROCHLORIDE
     Dosage: UNK
     Route: 048
     Dates: start: 20160707
  14. PROLIA [Concomitant]
     Active Substance: DENOSUMAB
     Dosage: 60 MG, INJECTION
     Dates: start: 20160307
  15. FUROSEMIDE. [Concomitant]
     Active Substance: FUROSEMIDE
     Dosage: 20 MG, UNK
     Dates: start: 20160707
  16. RANITIDINE. [Concomitant]
     Active Substance: RANITIDINE
     Dosage: 150 MG, UNK
  17. VITAMIN B COMPLEX [Concomitant]
     Active Substance: CYANOCOBALAMIN\DEXPANTHENOL\NIACINAMIDE\PYRIDOXINE HYDROCHLORIDE\RIBOFLAVIN 5^-PHOSPHATE SODIUM\THIAMINE HYDROCHLORIDE\VITAMIN B COMPLEX
     Dosage: UNK
     Dates: start: 20160707
  18. VITAMIN D3 [Concomitant]
     Active Substance: CHOLECALCIFEROL
     Dosage: 500-800
     Dates: start: 20160707
  19. CETIRIZINE [Concomitant]
     Active Substance: CETIRIZINE HYDROCHLORIDE
     Dosage: 5 MG, UNK
     Dates: start: 20160707
  20. MELATONIN [Concomitant]
     Active Substance: MELATONIN
     Dosage: 5 MG, UNK
     Dates: start: 20160707
  21. PRAMIPEXOLE. [Concomitant]
     Active Substance: PRAMIPEXOLE
     Dosage: .125 MG, UNK
  22. STRESS FORMULA [Concomitant]
     Dosage: 600 UNK, UNK
  23. SYNTHROID [Concomitant]
     Active Substance: LEVOTHYROXINE SODIUM
     Dosage: 60 MCG, UNK
     Dates: start: 20160707
  24. COUMADIN [Concomitant]
     Active Substance: WARFARIN SODIUM
     Dosage: 1 MG, UNK
     Dates: start: 20160307
  25. PENTOXIFYLLINE. [Concomitant]
     Active Substance: PENTOXIFYLLINE
     Dosage: 400 MG, UNK
     Dates: start: 20160707
  26. RANITIDINE. [Concomitant]
     Active Substance: RANITIDINE
     Dosage: 50/02 MG/ML, UNK
     Dates: start: 20160707
  27. DIGOXIN. [Concomitant]
     Active Substance: DIGOXIN
     Dosage: .25 MG, UNK
  28. SILDENAFIL. [Concomitant]
     Active Substance: SILDENAFIL
     Dosage: 20 MG, UNK
     Dates: start: 20160707
  29. ZOLPIDEM [Concomitant]
     Active Substance: ZOLPIDEM\ZOLPIDEM TARTRATE
     Dosage: 6 MG, UNK
     Dates: start: 20160707
  30. MULTIVITAMIN [Concomitant]
     Active Substance: VITAMINS
     Dosage: UNK
     Dates: start: 20160707
  31. MYCOPHENOLATE [Concomitant]
     Active Substance: MYCOPHENOLIC ACID
     Dosage: 250 MG, UNK
     Dates: start: 20160707
  32. FUROSEMIDE. [Concomitant]
     Active Substance: FUROSEMIDE
     Dosage: 10 MG/ML, UNK
     Dates: start: 20160707
  33. BENLYSTA [Concomitant]
     Active Substance: BELIMUMAB
     Dosage: 120 MG, UNK
     Dates: start: 20160707
  34. CITRUCEL [Concomitant]
     Active Substance: METHYLCELLULOSE (4000 MPA.S)
     Dosage: 500 MG, UNK
     Dates: start: 20111222
  35. PROVENTIL [Concomitant]
     Active Substance: ALBUTEROL
     Dosage: UNK
     Dates: start: 20160707
  36. WARFARIN [Concomitant]
     Active Substance: WARFARIN
     Dosage: 1 MG, UNK
     Dates: start: 20080620
  37. OPSUMIT [Suspect]
     Active Substance: MACITENTAN
     Indication: PULMONARY ARTERIAL HYPERTENSION
     Dosage: 10 MG, QD
     Route: 048
     Dates: start: 20160210
  38. K-TAB [Concomitant]
     Active Substance: POTASSIUM CHLORIDE
     Dosage: 10 MEQ, UNK
     Dates: start: 20160707
  39. GABAPENTIN. [Concomitant]
     Active Substance: GABAPENTIN
     Dosage: 100 MG, UNK
  40. DIGOXIN. [Concomitant]
     Active Substance: DIGOXIN
     Dosage: 60 MG/ML, UNK
     Dates: start: 20160707
  41. FOLIC ACID. [Concomitant]
     Active Substance: FOLIC ACID
     Dosage: 1 MG, UNK
     Dates: start: 20160707
  42. TRENTAL [Concomitant]
     Active Substance: PENTOXIFYLLINE
     Dosage: 400 MG, UNK
  43. CELLCEPT [Concomitant]
     Active Substance: MYCOPHENOLATE MOFETIL\MYCOPHENOLATE MOFETIL HYDROCHLORIDE
     Dosage: 250 MG, UNK
     Dates: start: 20160707
  44. HYDROCHLOROTHIAZIDE. [Concomitant]
     Active Substance: HYDROCHLOROTHIAZIDE
     Dosage: 200 MG, UNK
     Dates: start: 20160707
  45. ALPRAZOLAM. [Concomitant]
     Active Substance: ALPRAZOLAM
     Dosage: .5 MG, UNK
     Dates: start: 20160707
  46. AZITHROMYCIN ANHYDROUS. [Concomitant]
     Active Substance: AZITHROMYCIN ANHYDROUS
     Dosage: 600 MG, UNK
  47. CALCIUM [Concomitant]
     Active Substance: CALCIUM
     Dosage: 800 MG, UNK
  48. IPRATROPIUM BROMIDE AND ALBUTEROL SULFATE [Concomitant]
     Active Substance: ALBUTEROL SULFATE\IPRATROPIUM BROMIDE
     Dosage: UNK
     Dates: start: 20160707
  49. METHOTREXATE. [Concomitant]
     Active Substance: METHOTREXATE
     Dosage: 2.5 MG, UNK
     Dates: start: 20110321
  50. OMEPRAZOLE. [Concomitant]
     Active Substance: OMEPRAZOLE
     Dosage: 40 MG, UNK
  51. ZYRTEC [Concomitant]
     Active Substance: CETIRIZINE HYDROCHLORIDE
     Dosage: 10 MG, UNK

REACTIONS (4)
  - Pneumonia aspiration [Unknown]
  - Headache [Unknown]
  - Medical induction of coma [Recovered/Resolved]
  - Pleural effusion [Unknown]

NARRATIVE: CASE EVENT DATE: 20171114
